FAERS Safety Report 25515768 (Version 1)
Quarter: 2025Q3

REPORT INFORMATION
  Report Type: Spontaneous
  Country: US (occurrence: US)
  Receive Date: 20250704
  Receipt Date: 20250704
  Transmission Date: 20251020
  Serious: Yes (Hospitalization)
  Sender: UNILEVER
  Company Number: US-Unilever-2179919

PATIENT
  Age: 40 Year
  Sex: Female

DRUGS (1)
  1. DOVE (BENZALKONIUM CHLORIDE) [Suspect]
     Active Substance: BENZALKONIUM CHLORIDE

REACTIONS (9)
  - Pain [Unknown]
  - Feeding disorder [Unknown]
  - Haematological infection [Unknown]
  - Kidney infection [Unknown]
  - Urinary tract infection [Unknown]
  - Pyrexia [Unknown]
  - Back pain [Unknown]
  - Dysuria [Unknown]
  - Rash [Unknown]
